FAERS Safety Report 13020494 (Version 2)
Quarter: 2017Q3

REPORT INFORMATION
  Report Type: Report from Study
  Country: None (occurrence: GB)
  Receive Date: 20161212
  Receipt Date: 20170907
  Transmission Date: 20171127
  Serious: Yes (Hospitalization)
  Sender: FDA-Public Use
  Company Number: GB-ABBVIE-16K-167-1696859-00

PATIENT
  Age: 85 Year
  Sex: Female
  Weight: 38.14 kg

DRUGS (2)
  1. DUODOPA [Suspect]
     Active Substance: CARBIDOPA\LEVODOPA
     Indication: PARKINSON^S DISEASE
     Dosage: 1X 100ML CASSETTE
     Route: 050
     Dates: start: 201506
  2. DUODOPA [Suspect]
     Active Substance: CARBIDOPA\LEVODOPA
     Dosage: 1X 100ML CASSETTE
     Route: 050

REACTIONS (9)
  - Medical device discomfort [Unknown]
  - Diarrhoea [Not Recovered/Not Resolved]
  - Device connection issue [Unknown]
  - Condition aggravated [Unknown]
  - Malaise [Unknown]
  - Hypophagia [Unknown]
  - Weight decreased [Unknown]
  - Frequent bowel movements [Not Recovered/Not Resolved]
  - Dyskinesia [Unknown]

NARRATIVE: CASE EVENT DATE: 201607
